FAERS Safety Report 8771822 (Version 5)
Quarter: 2012Q4

REPORT INFORMATION
  Report Type: 
  Country: CO (occurrence: CO)
  Receive Date: 20120905
  Receipt Date: 20121109
  Transmission Date: 20130627
  Serious: Yes (Hospitalization, Other)
  Sender: FDA-Public Use
  Company Number: CO-PFIZER INC-2012217573

PATIENT
  Age: 63 Year
  Sex: Male

DRUGS (4)
  1. LIPITOR [Suspect]
     Indication: OPEN HEART SURGERY
     Dosage: 10 mg, 1x/day
     Route: 048
     Dates: start: 2001
  2. BETALOC [Concomitant]
     Indication: CARDIAC DISORDER
     Dosage: 25 mg, 2x/day
     Route: 048
     Dates: start: 2008
  3. BETALOC [Concomitant]
     Indication: HYPERTENSION
  4. ENALAPRIL [Concomitant]
     Indication: HYPERTENSION
     Dosage: 2.5 mg, 2x/day
     Dates: start: 2001

REACTIONS (4)
  - Cardiac disorder [Recovering/Resolving]
  - Device occlusion [Recovering/Resolving]
  - Cataract [Unknown]
  - Angiopathy [Unknown]
